FAERS Safety Report 5143313-0 (Version None)
Quarter: 2006Q4

REPORT INFORMATION
  Report Type: 
  Country: None (occurrence: None)
  Receive Date: 20061030
  Receipt Date: 20061018
  Transmission Date: 20070319
  Serious: Yes (Other)
  Sender: FDA-Public Use
  Company Number: 2006128772

PATIENT
  Age: 46 Year
  Sex: Male
  Weight: 68.0396 kg

DRUGS (3)
  1. ZOLOFT [Suspect]
     Indication: OBSESSIVE-COMPULSIVE DISORDER
     Dosage: 100 MG (100 MG, 1 IN 1 D)
     Dates: start: 20060701, end: 20060907
  2. LORAZEPAM [Concomitant]
  3. PAXIL [Concomitant]

REACTIONS (9)
  - DIZZINESS [None]
  - DRUG WITHDRAWAL SYNDROME [None]
  - DYSPNOEA [None]
  - FEELING ABNORMAL [None]
  - MEAN CELL HAEMOGLOBIN CONCENTRATION INCREASED [None]
  - MEAN CELL VOLUME INCREASED [None]
  - NERVOUSNESS [None]
  - RED BLOOD CELL COUNT INCREASED [None]
  - TREMOR [None]
